FAERS Safety Report 10017203 (Version 2)
Quarter: 2014Q1

REPORT INFORMATION
  Report Type: Spontaneous
  Country: US (occurrence: US)
  Receive Date: 20140318
  Receipt Date: 20140325
  Transmission Date: 20141002
  Serious: No
  Sender: FDA-Public Use
  Company Number: US-009507513-1403USA002298

PATIENT
  Sex: Female

DRUGS (6)
  1. REBETOL [Suspect]
     Indication: HEPATITIS C
     Dosage: UNK, QD
     Route: 048
     Dates: start: 20090507, end: 20090909
  2. REBETOL [Suspect]
     Dosage: 600 MG, BID
     Route: 048
     Dates: start: 20140203, end: 2014
  3. REBETOL [Suspect]
     Dosage: NOW IT IS 2 AND 1
     Route: 048
     Dates: start: 2014
  4. PEGINTRON [Suspect]
     Indication: HEPATITIS C
     Dosage: 0.5 ML, QW, REDIPEN
     Dates: start: 20090507, end: 20090909
  5. LANSOPRAZOLE [Concomitant]
     Dosage: 1 DF, QD
  6. SOVALDI [Concomitant]
     Indication: HEPATITIS C
     Dosage: 1 DF, QD

REACTIONS (7)
  - Feeling of body temperature change [Unknown]
  - Anaemia [Unknown]
  - Malaise [Unknown]
  - Headache [Unknown]
  - Dysphagia [Unknown]
  - Insomnia [Unknown]
  - Anaemia [Unknown]
